FAERS Safety Report 10233220 (Version 3)
Quarter: 2016Q1

REPORT INFORMATION
  Report Type: Spontaneous
  Country: US (occurrence: US)
  Receive Date: 20140612
  Receipt Date: 20160329
  Transmission Date: 20160525
  Serious: No
  Sender: FDA-Public Use
  Company Number: US-MALLINCKRODT-T201402410

PATIENT
  Age: 28 Year
  Sex: Male
  Weight: 81.63 kg

DRUGS (2)
  1. XARTEMIS XR [Suspect]
     Active Substance: ACETAMINOPHEN\OXYCODONE HYDROCHLORIDE
     Indication: PAIN
     Dosage: 7.5/325 MG, 2 TABS Q12H
     Route: 048
     Dates: start: 20140529, end: 20140603
  2. KETOROLAC [Suspect]
     Active Substance: KETOROLAC\KETOROLAC TROMETHAMINE
     Indication: PAIN
     Dosage: UNK, TID
     Route: 048
     Dates: start: 20140529, end: 20140601

REACTIONS (2)
  - Erectile dysfunction [Recovered/Resolved]
  - Erection increased [Recovered/Resolved]
